FAERS Safety Report 9653081 (Version 2)
Quarter: 2014Q2

REPORT INFORMATION
  Report Type: Spontaneous
  Country: US (occurrence: US)
  Receive Date: 20131029
  Receipt Date: 20140616
  Transmission Date: 20141212
  Serious: No
  Sender: FDA-Public Use
  Company Number: US-BIOGENIDEC-2013BI078573

PATIENT
  Age: 57 Year
  Sex: Female

DRUGS (2)
  1. TECFIDERA [Suspect]
     Indication: MULTIPLE SCLEROSIS
     Route: 048
     Dates: start: 201306
  2. AVONEX [Concomitant]
     Route: 030
     Dates: start: 19970101

REACTIONS (13)
  - Vertigo [Recovered/Resolved]
  - Dizziness [Not Recovered/Not Resolved]
  - Balance disorder [Not Recovered/Not Resolved]
  - Prescribed underdose [Unknown]
  - Gait disturbance [Not Recovered/Not Resolved]
  - Gastric disorder [Recovered/Resolved]
  - Nystagmus [Recovered/Resolved]
  - Fall [Recovered/Resolved]
  - Head injury [Recovered/Resolved]
  - Pain of skin [Recovered/Resolved]
  - Contusion [Not Recovered/Not Resolved]
  - Flushing [Recovered/Resolved]
  - White blood cell count decreased [Not Recovered/Not Resolved]
